FAERS Safety Report 8922432 (Version 1)
Quarter: 2012Q4

REPORT INFORMATION
  Report Type: 
  Country: FR (occurrence: FR)
  Receive Date: 20121123
  Receipt Date: 20121123
  Transmission Date: 20130627
  Serious: Yes (Other)
  Sender: FDA-Public Use
  Company Number: FR-JNJFOC-20120814661

PATIENT
  Age: 29 Year
  Sex: Male
  Weight: 58 kg

DRUGS (10)
  1. REMICADE [Suspect]
     Indication: ENTEROCOLITIS HAEMORRHAGIC
     Route: 042
     Dates: start: 20120702
  2. REMICADE [Suspect]
     Indication: ENTEROCOLITIS HAEMORRHAGIC
     Route: 042
     Dates: start: 20120618
  3. REMICADE [Suspect]
     Indication: ENTEROCOLITIS HAEMORRHAGIC
     Dosage: 3rd infusion
     Route: 042
     Dates: start: 20120829, end: 20120829
  4. REMICADE [Suspect]
     Indication: COLITIS ULCERATIVE
     Route: 042
     Dates: start: 20120618
  5. REMICADE [Suspect]
     Indication: COLITIS ULCERATIVE
     Route: 042
     Dates: start: 20120702
  6. REMICADE [Suspect]
     Indication: COLITIS ULCERATIVE
     Dosage: 3rd infusion
     Route: 042
     Dates: start: 20120829, end: 20120829
  7. IMUREL [Concomitant]
     Indication: COLITIS ULCERATIVE
     Route: 048
     Dates: start: 20120702
  8. CACIT D3 [Concomitant]
     Indication: COLITIS ULCERATIVE
     Dosage: 1 DF dosage
     Route: 048
     Dates: start: 20120611
  9. DIFFU K [Concomitant]
     Indication: COLITIS ULCERATIVE
     Dosage: 2 DF daily
     Route: 048
     Dates: start: 20120727
  10. HEMISUCCINATE HYDROCORTISONE [Concomitant]
     Indication: PREMEDICATION
     Route: 065
     Dates: start: 20120828

REACTIONS (5)
  - Infusion related reaction [Recovered/Resolved]
  - Dyspepsia [Recovered/Resolved]
  - Dyspnoea [Recovered/Resolved]
  - Face oedema [Recovered/Resolved]
  - Vomiting [Recovered/Resolved]
